FAERS Safety Report 7951702-1 (Version None)
Quarter: 2011Q4

REPORT INFORMATION
  Report Type: 
  Country: None (occurrence: None)
  Receive Date: 20111201
  Receipt Date: 20111128
  Transmission Date: 20120403
  Serious: Yes (Life-Threatening, Other)
  Sender: FDA-Public Use
  Company Number: CA-ROCHE-800165

PATIENT
  Sex: Female
  Weight: 59.928 kg

DRUGS (5)
  1. CLODRONIC ACID [Concomitant]
     Dosage: DRUG REPORTED AS CONDRONATE
  2. RAMIPRIL [Concomitant]
     Dates: start: 20110826
  3. AVASTIN [Suspect]
     Indication: BREAST CANCER
     Dosage: DOSE 15MG/KG
     Route: 042
  4. ABRAXANE [Concomitant]
  5. XELODA [Concomitant]
     Dates: start: 20111001

REACTIONS (2)
  - EJECTION FRACTION DECREASED [None]
  - DISEASE PROGRESSION [None]
